FAERS Safety Report 9523184 (Version 3)
Quarter: 2013Q4

REPORT INFORMATION
  Report Type: Report from Study
  Country: JP (occurrence: JP)
  Receive Date: 20130913
  Receipt Date: 20131125
  Transmission Date: 20140711
  Serious: Yes (Death)
  Sender: FDA-Public Use
  Company Number: JP-GLAXOSMITHKLINE-B0921348A

PATIENT
  Sex: Female
  Weight: 55 kg

DRUGS (3)
  1. VOTRIENT 200MG [Suspect]
     Indication: SOFT TISSUE CANCER
     Dosage: 400MG PER DAY
     Route: 048
     Dates: start: 20130213, end: 20130419
  2. CALONAL [Suspect]
     Route: 065
  3. OMEPRAZOLE [Concomitant]
     Indication: PEPTIC ULCER
     Route: 065

REACTIONS (6)
  - Intra-abdominal haemorrhage [Fatal]
  - Gastrointestinal perforation [Fatal]
  - Hypertension [Recovered/Resolved]
  - Hepatic function abnormal [Recovered/Resolved]
  - Hypothyroidism [Recovered/Resolved]
  - Proteinuria [Not Recovered/Not Resolved]
